FAERS Safety Report 5072084-1 (Version None)
Quarter: 2006Q3

REPORT INFORMATION
  Report Type: 
  Country: None (occurrence: None)
  Receive Date: 20060807
  Receipt Date: 20060727
  Transmission Date: 20061208
  Serious: Yes (Other)
  Sender: FDA-Public Use
  Company Number: US-JNJFOC-20060402577

PATIENT
  Age: 50 Year
  Sex: Male
  Weight: 104.78 kg

DRUGS (10)
  1. REMICADE [Suspect]
     Indication: POUCHITIS
     Route: 042
  2. REMICADE [Suspect]
     Indication: COLITIS ULCERATIVE
     Route: 042
  3. REMICADE [Suspect]
     Indication: CROHN'S DISEASE
     Dosage: RECEIVED 2 DOSES IN NOV-05
     Route: 042
  4. LEVAQUIN [Concomitant]
     Indication: ANTIBIOTIC PROPHYLAXIS
  5. CITALOPRAM [Concomitant]
     Indication: DEPRESSION
  6. FOLIC ACID [Concomitant]
  7. IMODIUM [Concomitant]
     Indication: DIARRHOEA
     Dosage: 3-4/DAY PRN
  8. EXCEDRIN (MIGRAINE) [Concomitant]
     Indication: HEADACHE
  9. IBUPROFEN [Concomitant]
     Indication: HEADACHE
  10. PENTASA [Concomitant]
     Indication: CROHN'S DISEASE

REACTIONS (4)
  - EXOSTOSIS [None]
  - INFLUENZA [None]
  - NASAL SEPTUM DEVIATION [None]
  - SINUSITIS [None]
